FAERS Safety Report 7252762-6 (Version None)
Quarter: 2011Q1

REPORT INFORMATION
  Report Type: 
  Country: None (occurrence: None)
  Receive Date: 20110129
  Receipt Date: 20100120
  Transmission Date: 20110831
  Serious: No
  Sender: FDA-Public Use
  Company Number: US-ABBOTT-10P-163-0622105-00

PATIENT
  Sex: Male
  Weight: 70.37 kg

DRUGS (1)
  1. HUMIRA [Suspect]
     Indication: PSORIATIC ARTHROPATHY
     Route: 058
     Dates: start: 20090401

REACTIONS (6)
  - DRUG INEFFECTIVE [None]
  - DYSURIA [None]
  - PSORIASIS [None]
  - PHARYNGITIS STREPTOCOCCAL [None]
  - COUGH [None]
  - GASTROOESOPHAGEAL REFLUX DISEASE [None]
